FAERS Safety Report 25970716 (Version 3)
Quarter: 2025Q4

REPORT INFORMATION
  Report Type: Spontaneous
  Country: US (occurrence: US)
  Receive Date: 20251028
  Receipt Date: 20251201
  Transmission Date: 20260118
  Serious: No
  Sender: PFIZER
  Company Number: US-PFIZER INC-202500198111

PATIENT
  Age: 14 Year
  Sex: Male
  Weight: 29.5 kg

DRUGS (3)
  1. GENOTROPIN [Suspect]
     Active Substance: SOMATROPIN
     Indication: Small for dates baby
     Dosage: 1.32 MG, DAILY (7 DAYS/WEEK), NOT COMPATIBLE WITH THE PEN
  2. GENOTROPIN [Suspect]
     Active Substance: SOMATROPIN
     Dosage: 1.2 ALTERNATING WITH 1.4 MG/DAY 7 DAYS/WEEK
  3. GENOTROPIN [Suspect]
     Active Substance: SOMATROPIN
     Dosage: 1.2 ALTERNATING WITH 1.4 MG/DAY 7 DAYS/WEEK

REACTIONS (4)
  - White blood cell count decreased [Unknown]
  - Device leakage [Unknown]
  - Device breakage [Unknown]
  - Intercepted product prescribing error [Unknown]
